FAERS Safety Report 23122206 (Version 1)
Quarter: 2023Q4

REPORT INFORMATION
  Report Type: Spontaneous
  Country: CA (occurrence: CA)
  Receive Date: 20231030
  Receipt Date: 20231030
  Transmission Date: 20240110
  Serious: Yes (Hospitalization, Other)
  Sender: FDA-Public Use
  Company Number: CA-SANDOZ-SDZ2023CA045808

PATIENT
  Age: 78 Year
  Sex: Female

DRUGS (2)
  1. HYDROCHLOROTHIAZIDE\VALSARTAN [Suspect]
     Active Substance: HYDROCHLOROTHIAZIDE\VALSARTAN
     Indication: Blood pressure management
     Dosage: 1 DOSAGE FORM (160/25 MG)
     Route: 048
  2. HYDROCHLOROTHIAZIDE\VALSARTAN [Suspect]
     Active Substance: HYDROCHLOROTHIAZIDE\VALSARTAN
     Dosage: 1 DOSAGE FORM, QD (320/25 MG)
     Route: 065

REACTIONS (3)
  - Hepatic cancer [Not Recovered/Not Resolved]
  - Obstructive pancreatitis [Not Recovered/Not Resolved]
  - Portal vein thrombosis [Not Recovered/Not Resolved]
